FAERS Safety Report 25268331 (Version 4)
Quarter: 2025Q2

REPORT INFORMATION
  Report Type: Spontaneous
  Country: US (occurrence: US)
  Receive Date: 20250505
  Receipt Date: 20250609
  Transmission Date: 20250717
  Serious: No
  Sender: PFIZER
  Company Number: US-PFIZER INC-202500045980

PATIENT
  Age: 77 Year
  Sex: Male

DRUGS (2)
  1. GENOTROPIN [Suspect]
     Active Substance: SOMATROPIN
     Indication: Growth hormone deficiency
     Dosage: ALTERNATES BETWEEN 1.4 MG TO 1.6 MG TO UTILIZE FULL 12MG;DOES INJECTION AT NIGHT BEFORE GOING TO BED
  2. GENOTROPIN [Suspect]
     Active Substance: SOMATROPIN
     Dosage: ALTERNATES BETWEEN 1.4 MG TO 1.6 MG; DOES INJECTION AT NIGHT BEFORE GOING TO BED

REACTIONS (5)
  - Device use error [Unknown]
  - Device material issue [Unknown]
  - Device physical property issue [Unknown]
  - Device information output issue [Unknown]
  - Drug dose omission by device [Unknown]
